FAERS Safety Report 8482588-7 (Version None)
Quarter: 2012Q3

REPORT INFORMATION
  Report Type: 
  Country: None (occurrence: None)
  Receive Date: 20120702
  Receipt Date: 20120628
  Transmission Date: 20120928
  Serious: Yes (Hospitalization, Disabling, Other)
  Sender: FDA-Public Use
  Company Number: US-MERCK-1102USA00900

PATIENT
  Age: 60 Year
  Sex: Female

DRUGS (3)
  1. BONIVA [Suspect]
     Route: 048
     Dates: start: 20061205, end: 20100304
  2. FOSAMAX [Suspect]
     Route: 048
     Dates: start: 20010101, end: 20031203
  3. FOSAMAX [Suspect]
     Indication: BONE DENSITY DECREASED
     Route: 048
     Dates: start: 19950522

REACTIONS (42)
  - HYPOKALAEMIA [None]
  - BURSITIS [None]
  - MUSCLE SPASMS [None]
  - LUMBAR RADICULOPATHY [None]
  - SPONDYLOLISTHESIS [None]
  - BLOOD CHOLESTEROL INCREASED [None]
  - ANAEMIA POSTOPERATIVE [None]
  - OSTEONECROSIS [None]
  - CONTUSION [None]
  - DEVICE FAILURE [None]
  - ROAD TRAFFIC ACCIDENT [None]
  - INSOMNIA [None]
  - GASTROOESOPHAGEAL REFLUX DISEASE [None]
  - FATIGUE [None]
  - OSTEOPOROSIS [None]
  - OSTEOARTHRITIS [None]
  - HYPONATRAEMIA [None]
  - GAIT DISTURBANCE [None]
  - GASTROENTERITIS BACTERIAL [None]
  - NECK PAIN [None]
  - TENDONITIS [None]
  - SPINAL COLUMN STENOSIS [None]
  - DENTAL CARIES [None]
  - BODY HEIGHT DECREASED [None]
  - OEDEMA PERIPHERAL [None]
  - DYSPHAGIA [None]
  - VENOUS INSUFFICIENCY [None]
  - DYSPEPSIA [None]
  - PAIN IN EXTREMITY [None]
  - PAIN [None]
  - ADVERSE DRUG REACTION [None]
  - OSTEONECROSIS OF JAW [None]
  - ROTATOR CUFF SYNDROME [None]
  - ABNORMAL LOSS OF WEIGHT [None]
  - KNEE DEFORMITY [None]
  - RHINITIS ALLERGIC [None]
  - ARTHRALGIA [None]
  - FEMUR FRACTURE [None]
  - LUMBAR SPINAL STENOSIS [None]
  - TOOTH DISORDER [None]
  - SPINAL OSTEOARTHRITIS [None]
  - PAIN IN JAW [None]
